FAERS Safety Report 6055765-2 (Version None)
Quarter: 2009Q1

REPORT INFORMATION
  Report Type: 
  Country: None (occurrence: None)
  Receive Date: 20090126
  Receipt Date: 20090116
  Transmission Date: 20090719
  Serious: Yes (Other)
  Sender: FDA-Public Use
  Company Number: 2009PL000017

PATIENT
  Age: 69 Year
  Sex: Male

DRUGS (1)
  1. ALLOPURINOL [Suspect]
     Dosage: 200 MG; QD;

REACTIONS (4)
  - CHOLESTASIS [None]
  - GRANULOMATOUS LIVER DISEASE [None]
  - HEPATIC CYST [None]
  - NECROSIS [None]
